FAERS Safety Report 10253127 (Version 1)
Quarter: 2014Q2

REPORT INFORMATION
  Report Type: Spontaneous
  Country: US (occurrence: US)
  Receive Date: 20140623
  Receipt Date: 20140623
  Transmission Date: 20141212
  Serious: Yes (Hospitalization)
  Sender: FDA-Public Use
  Company Number: US-GLAXOSMITHKLINE-A1077780A

PATIENT
  Sex: Male

DRUGS (2)
  1. ADVAIR HFA [Suspect]
     Indication: DYSPNOEA
     Route: 055
     Dates: start: 20140417
  2. VENTOLIN HFA [Suspect]
     Indication: DYSPNOEA
     Route: 065
     Dates: start: 20140417

REACTIONS (1)
  - Cardiac disorder [Unknown]
